FAERS Safety Report 8958764 (Version 1)
Quarter: 2012Q4

REPORT INFORMATION
  Report Type: 
  Country: US (occurrence: US)
  Receive Date: 20121211
  Receipt Date: 20121211
  Transmission Date: 20130627
  Serious: Yes (Hospitalization)
  Sender: FDA-Public Use
  Company Number: US-NOVOPROD-365742

PATIENT
  Age: 54 Year
  Sex: Male
  Weight: 154.22 kg

DRUGS (1)
  1. LEVEMIR FLEXPEN [Suspect]
     Indication: TYPE 2 DIABETES MELLITUS
     Dosage: 10 U, qd
     Route: 058
     Dates: start: 201201, end: 201203

REACTIONS (4)
  - Myocardial infarction [Recovered/Resolved]
  - Blood glucose increased [Recovered/Resolved]
  - Product quality issue [Recovered/Resolved]
  - Burning sensation [Recovered/Resolved]
